FAERS Safety Report 6226557-6 (Version None)
Quarter: 2009Q2

REPORT INFORMATION
  Report Type: 
  Country: None (occurrence: None)
  Receive Date: 20090612
  Receipt Date: 20090515
  Transmission Date: 20091009
  Serious: No
  Sender: FDA-Public Use
  Company Number: US-JNJFOC-20090504220

PATIENT
  Age: 30 Year
  Sex: Male
  Weight: 92.99 kg

DRUGS (1)
  1. INVEGA [Suspect]
     Indication: BIPOLAR I DISORDER
     Route: 048

REACTIONS (2)
  - ERECTILE DYSFUNCTION [None]
  - WEIGHT INCREASED [None]
